FAERS Safety Report 5448407-8 (Version None)
Quarter: 2007Q3

REPORT INFORMATION
  Report Type: 
  Country: None (occurrence: None)
  Receive Date: 20070906
  Receipt Date: 20070823
  Transmission Date: 20080115
  Serious: Yes (Other)
  Sender: FDA-Public Use
  Company Number: TPA2007A01722

PATIENT
  Age: 49 Year
  Sex: Female

DRUGS (5)
  1. ROZEREM [Suspect]
     Indication: CIRCADIAN RHYTHM SLEEP DISORDER
     Dosage: 8 MG, QHS, PER ORAL
     Route: 048
     Dates: start: 20070801, end: 20070801
  2. ZOLOFT [Concomitant]
  3. LAMICTAL [Concomitant]
  4. TOPAMAX [Concomitant]
  5. TRAZODON (TRAZODONE) [Concomitant]

REACTIONS (15)
  - ABNORMAL BEHAVIOUR [None]
  - AFFECT LABILITY [None]
  - AGITATION [None]
  - DIZZINESS [None]
  - FEAR [None]
  - HEADACHE [None]
  - HYPERACUSIS [None]
  - IMPULSIVE BEHAVIOUR [None]
  - PAIN [None]
  - PHOTOPHOBIA [None]
  - SELF-INJURIOUS IDEATION [None]
  - SUICIDAL BEHAVIOUR [None]
  - SUICIDAL IDEATION [None]
  - TEARFULNESS [None]
  - VIOLENCE-RELATED SYMPTOM [None]
